FAERS Safety Report 4360231-6 (Version None)
Quarter: 2004Q2

REPORT INFORMATION
  Report Type: 
  Country: None (occurrence: None)
  Receive Date: 20040513
  Receipt Date: 20040504
  Transmission Date: 20050107
  Serious: Yes (Hospitalization)
  Sender: FDA-Public Use
  Company Number: FRWYE739504MAY04

PATIENT
  Age: 61 Year
  Sex: Female

DRUGS (3)
  1. ENBREL (ETANERCEPT, INJECTION, 0) [Suspect]
     Indication: RHEUMATOID ARTHRITIS
     Dosage: 25 MG 2X PER 1 WK SC
     Route: 058
     Dates: start: 20031101, end: 20040331
  2. PREDNISONE [Suspect]
     Indication: RHEUMATOID ARTHRITIS
     Dosage: 10 MG 1X PER 1 DAY
     Route: 048
     Dates: start: 19920101
  3. KETOPROFEN [Suspect]
     Indication: RHEUMATOID ARTHRITIS
     Dosage: 150 MG 2X PER 1 DAY
     Route: 048
     Dates: start: 19920101

REACTIONS (4)
  - BONE INFECTION [None]
  - DRUG INEFFECTIVE [None]
  - PALATAL DISORDER [None]
  - TOOTH INFECTION [None]
